FAERS Safety Report 10008925 (Version 1)
Quarter: 2014Q1

REPORT INFORMATION
  Report Type: Spontaneous
  Country: US (occurrence: US)
  Receive Date: 20140313
  Receipt Date: 20140313
  Transmission Date: 20141002
  Serious: No
  Sender: FDA-Public Use
  Company Number: US-INCYTE CORPORATION-2012IN001241

PATIENT
  Sex: Male

DRUGS (5)
  1. JAKAFI [Suspect]
     Indication: MYELOFIBROSIS
     Dosage: 20 MG, BID
     Route: 048
     Dates: start: 20120614, end: 2012
  2. OXYCODONE [Concomitant]
     Dosage: 5 MG, PRN
  3. VALIUM [Concomitant]
     Dosage: 5 MG, QD
  4. TRUSOPT [Concomitant]
     Dosage: 1 GTT, BID, IN RIGHT EYE
  5. LANSOPRAZOLE [Concomitant]
     Dosage: 15 MG, QD

REACTIONS (2)
  - Gastrointestinal haemorrhage [Unknown]
  - Haematochezia [Unknown]
